FAERS Safety Report 7762278-6 (Version None)
Quarter: 2011Q3

REPORT INFORMATION
  Report Type: 
  Country: None (occurrence: None)
  Receive Date: 20110920
  Receipt Date: 20110621
  Transmission Date: 20111222
  Serious: Yes (Other)
  Sender: FDA-Public Use
  Company Number: DE-ROCHE-784806

PATIENT
  Age: 68 Year
  Sex: Female

DRUGS (2)
  1. IBANDRONATE SODIUM [Suspect]
     Route: 042
  2. ZOLEDRONIC ACID [Suspect]
     Route: 042

REACTIONS (2)
  - OSTEONECROSIS OF JAW [None]
  - TOOTH EXTRACTION [None]
